FAERS Safety Report 5367477-9 (Version None)
Quarter: 2007Q2

REPORT INFORMATION
  Report Type: 
  Country: None (occurrence: None)
  Receive Date: 20070622
  Receipt Date: 20060928
  Transmission Date: 20071010
  Serious: No
  Sender: FDA-Public Use
  Company Number: US-ASTRAZENECA-2006UW18990

PATIENT
  Age: 8 Month
  Sex: Male

DRUGS (3)
  1. PULMICORT RESPULES [Suspect]
     Indication: WHEEZING
     Route: 055
  2. REGLAN [Concomitant]
  3. PRILOSEC [Concomitant]
     Route: 048

REACTIONS (3)
  - EAR DISCOMFORT [None]
  - INCREASED UPPER AIRWAY SECRETION [None]
  - RHINORRHOEA [None]
